FAERS Safety Report 25776591 (Version 1)
Quarter: 2025Q3

REPORT INFORMATION
  Report Type: Spontaneous
  Country: US (occurrence: US)
  Receive Date: 20250909
  Receipt Date: 20250909
  Transmission Date: 20251021
  Serious: No
  Sender: DOMPE FARMACEUTICI
  Company Number: US-FARMAPROD-202503-0758

PATIENT
  Sex: Female

DRUGS (33)
  1. OXERVATE [Suspect]
     Active Substance: CENEGERMIN-BKBJ
     Indication: Neurotrophic keratopathy
     Route: 047
     Dates: start: 20250121
  2. METOPROLOL SUCCINATE [Concomitant]
     Active Substance: METOPROLOL SUCCINATE
  3. XYZAL [Concomitant]
     Active Substance: LEVOCETIRIZINE DIHYDROCHLORIDE
  4. ONDANSETRON HYDROCHLORIDE [Concomitant]
     Active Substance: ONDANSETRON HYDROCHLORIDE
  5. HYOSCYAMINE SULFATE [Concomitant]
     Active Substance: HYOSCYAMINE SULFATE
  6. MYRBETRIQ [Concomitant]
     Active Substance: MIRABEGRON
  7. CLOBETASOL PROPIONATE [Concomitant]
     Active Substance: CLOBETASOL PROPIONATE
  8. VITAMIN B COMPLEX [Concomitant]
     Active Substance: CYANOCOBALAMIN\DEXPANTHENOL\NIACINAMIDE\PYRIDOXINE HYDROCHLORIDE\RIBOFLAVIN 5^-PHOSPHATE SODIUM\THIA
  9. BISACODYL [Concomitant]
     Active Substance: BISACODYL
  10. NEXIUM [Concomitant]
     Active Substance: ESOMEPRAZOLE MAGNESIUM
  11. SENOKOT-S [Concomitant]
     Active Substance: DOCUSATE SODIUM\SENNOSIDES
  12. ASPIRIN [Concomitant]
     Active Substance: ASPIRIN
  13. VITAMIN D3 [Concomitant]
     Active Substance: CHOLECALCIFEROL
  14. PYRIDOXINE [Concomitant]
     Active Substance: PYRIDOXINE
  15. CEVIMELINE HYDROCHLORIDE [Concomitant]
     Active Substance: CEVIMELINE HYDROCHLORIDE
  16. ACARBOSE [Concomitant]
     Active Substance: ACARBOSE
  17. RECLAST [Concomitant]
     Active Substance: ZOLEDRONIC ACID
  18. VITAMIN C [Concomitant]
     Active Substance: ASCORBIC ACID
  19. FLUOXETINE HYDROCHLORIDE [Concomitant]
     Active Substance: FLUOXETINE HYDROCHLORIDE
  20. NITROGLYCERIN [Concomitant]
     Active Substance: NITROGLYCERIN
  21. FERROUS SULFATE [Concomitant]
     Active Substance: FERROUS SULFATE
  22. SUCRALFATE [Concomitant]
     Active Substance: SUCRALFATE
  23. TRAZODONE HCL [Concomitant]
     Active Substance: TRAZODONE HYDROCHLORIDE
  24. FLUOXETINE HYDROCHLORIDE [Concomitant]
     Active Substance: FLUOXETINE HYDROCHLORIDE
  25. PHENAZOPYRIDINE HCL [Concomitant]
     Active Substance: PHENAZOPYRIDINE HYDROCHLORIDE
  26. POTASSIUM CHL [Concomitant]
  27. SOLIFENACIN SUCC [Concomitant]
  28. LORAZEPAM [Concomitant]
     Active Substance: LORAZEPAM
  29. ATORVASTATIN CALCIUM [Concomitant]
     Active Substance: ATORVASTATIN CALCIUM
  30. AMOXICILLIN [Concomitant]
     Active Substance: AMOXICILLIN
  31. PROGLYCEM [Concomitant]
     Active Substance: DIAZOXIDE
  32. ESTRADIOL [Concomitant]
     Active Substance: ESTRADIOL
  33. LINZESS [Concomitant]
     Active Substance: LINACLOTIDE

REACTIONS (2)
  - Influenza [Unknown]
  - Bronchitis [Unknown]
